FAERS Safety Report 12240093 (Version 1)
Quarter: 2016Q2

REPORT INFORMATION
  Report Type: Spontaneous
  Country: JP (occurrence: JP)
  Receive Date: 20160405
  Receipt Date: 20160405
  Transmission Date: 20160815
  Serious: Yes (Hospitalization)
  Sender: FDA-Public Use
  Company Number: JP-ELI_LILLY_AND_COMPANY-JP201602008659

PATIENT
  Age: 66 Year
  Sex: Male

DRUGS (11)
  1. ZYPREXA [Suspect]
     Active Substance: OLANZAPINE
     Indication: DEPRESSIVE SYMPTOM
     Dosage: 2.5 MG, QD
     Route: 048
     Dates: start: 20140227, end: 20150218
  2. ZYPREXA [Suspect]
     Active Substance: OLANZAPINE
     Dosage: 5 MG, QD
     Route: 048
     Dates: start: 20150219, end: 20150225
  3. ZYPREXA [Suspect]
     Active Substance: OLANZAPINE
     Dosage: 7.5 MG, QD
     Route: 048
     Dates: start: 20150226, end: 20160210
  4. AMLODIPINE [Concomitant]
     Active Substance: AMLODIPINE BESYLATE
     Dosage: UNK
     Route: 065
     Dates: start: 20160215
  5. ZYPREXA [Suspect]
     Active Substance: OLANZAPINE
     Dosage: 5 MG, QD
     Route: 048
     Dates: start: 20160211, end: 20160214
  6. ZYPREXA [Suspect]
     Active Substance: OLANZAPINE
     Dosage: 2.5 MG, QD
     Route: 048
     Dates: start: 20160215, end: 20160225
  7. FLUNITRAZEPAM [Concomitant]
     Active Substance: FLUNITRAZEPAM
     Dosage: UNK
     Route: 065
     Dates: end: 20160204
  8. MIRTAZAPINE. [Concomitant]
     Active Substance: MIRTAZAPINE
     Dosage: UNK
  9. YOKUKANSAN [Concomitant]
     Active Substance: HERBALS
     Dosage: UNK
     Route: 065
     Dates: end: 20160215
  10. AMLODIPINE [Concomitant]
     Active Substance: AMLODIPINE BESYLATE
     Dosage: 7.5 UNK, UNK
     Route: 065
     Dates: end: 20160215
  11. MIRTAZAPINE. [Concomitant]
     Active Substance: MIRTAZAPINE
     Dosage: UNK
     Route: 065

REACTIONS (5)
  - Delirium [Recovered/Resolved]
  - Fall [Unknown]
  - Dehydration [Unknown]
  - Depressive symptom [Unknown]
  - Off label use [Unknown]

NARRATIVE: CASE EVENT DATE: 20160203
